FAERS Safety Report 5431350-8 (Version None)
Quarter: 2007Q3

REPORT INFORMATION
  Report Type: 
  Country: None (occurrence: None)
  Receive Date: 20070830
  Receipt Date: 20070502
  Transmission Date: 20080115
  Serious: No
  Sender: FDA-Public Use
  Company Number: A0649736A

PATIENT
  Age: 33 Year
  Sex: Female

DRUGS (1)
  1. WELLBUTRIN XL [Suspect]
     Indication: STRESS
     Dosage: 150MG PER DAY
     Route: 048
     Dates: start: 20061001

REACTIONS (3)
  - ALCOHOL USE [None]
  - NARCISSISTIC PERSONALITY DISORDER [None]
  - PERSONALITY CHANGE [None]
